FAERS Safety Report 17204723 (Version 6)
Quarter: 2020Q4

REPORT INFORMATION
  Report Type: Report from Study
  Country: None (occurrence: NL)
  Receive Date: 20191226
  Receipt Date: 20201228
  Transmission Date: 20210113
  Serious: Yes (Disabling, Other)
  Sender: FDA-Public Use
  Company Number: NL-ABBVIE-17K-114-1964603-00

PATIENT
  Sex: Female
  Weight: 57 kg

DRUGS (9)
  1. DUODOPA [Suspect]
     Active Substance: CARBIDOPA\LEVODOPA
     Dosage: MD: 3.0, CD: 1.0, ED: 3.5, CND: 2.8; 24 HOUR ADMINISTRATION
     Route: 050
  2. DUODOPA [Suspect]
     Active Substance: CARBIDOPA\LEVODOPA
     Dosage: MD 3.0ML, CD 4.0ML, ED 3.0ML; CND 2.8ML, END 2.5ML
     Route: 050
  3. DUODOPA [Suspect]
     Active Substance: CARBIDOPA\LEVODOPA
     Dosage: MD 3.5, CD 3.8, ED 2.8, CND 2.2 END 2.5 REMAINS AT 24 HOURS
     Route: 050
  4. DUODOPA [Suspect]
     Active Substance: CARBIDOPA\LEVODOPA
     Dosage: CD 2.8
     Route: 050
  5. DUODOPA [Suspect]
     Active Substance: CARBIDOPA\LEVODOPA
     Dosage: MD: 3.0 ML , CD: 4.0 ML/HR, ED: 3.0 ML, CND: 3.0 ML/HR
     Route: 050
  6. DUODOPA [Suspect]
     Active Substance: CARBIDOPA\LEVODOPA
     Dosage: CD: 4.5, ED: 3.5, CND: 3.2, END: 3.5?24 HOUR ADMINISTRATION
     Route: 050
  7. LAXANS [Concomitant]
     Indication: ABNORMAL FAECES
  8. VITAMIN B12 [Concomitant]
     Active Substance: CYANOCOBALAMIN
     Indication: PRODUCT USED FOR UNKNOWN INDICATION
  9. DUODOPA [Suspect]
     Active Substance: CARBIDOPA\LEVODOPA
     Indication: PARKINSON^S DISEASE
     Dosage: MORNING DOSE 4, CONTINUOUS DOSE 4.4, EXTRA DOSE 4, NIGHT DOSE 2.8
     Route: 050
     Dates: start: 20080819

REACTIONS (53)
  - Nocturia [Unknown]
  - Malaise [Unknown]
  - Urinary incontinence [Recovered/Resolved]
  - Intracranial pressure increased [Not Recovered/Not Resolved]
  - Sensory disturbance [Not Recovered/Not Resolved]
  - Feeling abnormal [Not Recovered/Not Resolved]
  - Device occlusion [Recovered/Resolved]
  - On and off phenomenon [Not Recovered/Not Resolved]
  - Dyskinesia [Recovered/Resolved]
  - Fall [Not Recovered/Not Resolved]
  - Cognitive disorder [Not Recovered/Not Resolved]
  - Abnormal faeces [Not Recovered/Not Resolved]
  - Pollakiuria [Recovering/Resolving]
  - Device kink [Recovered/Resolved]
  - Muscle rigidity [Not Recovered/Not Resolved]
  - Urinary tract disorder [Not Recovered/Not Resolved]
  - Memory impairment [Recovering/Resolving]
  - Pain in extremity [Not Recovered/Not Resolved]
  - Infrequent bowel movements [Not Recovered/Not Resolved]
  - Drug ineffective [Not Recovered/Not Resolved]
  - Unevaluable event [Unknown]
  - Abnormal behaviour [Not Recovered/Not Resolved]
  - Weight decreased [Not Recovered/Not Resolved]
  - Fall [Unknown]
  - Freezing phenomenon [Not Recovered/Not Resolved]
  - Dyskinesia [Recovering/Resolving]
  - Stoma site infection [Recovered/Resolved]
  - Stoma site irritation [Not Recovered/Not Resolved]
  - Traumatic intracranial haemorrhage [Not Recovered/Not Resolved]
  - Musculoskeletal stiffness [Not Recovered/Not Resolved]
  - Stress [Not Recovered/Not Resolved]
  - Emotional disorder [Not Recovered/Not Resolved]
  - Abnormal dreams [Recovered/Resolved]
  - Bradykinesia [Not Recovered/Not Resolved]
  - Insomnia [Recovered/Resolved]
  - Incorrect dose administered [Not Recovered/Not Resolved]
  - Stoma site odour [Not Recovered/Not Resolved]
  - Faecal volume decreased [Recovered/Resolved]
  - Head injury [Not Recovered/Not Resolved]
  - Device kink [Unknown]
  - Disturbance in attention [Not Recovered/Not Resolved]
  - Stoma site erythema [Recovering/Resolving]
  - Stoma site discharge [Not Recovered/Not Resolved]
  - Traumatic haematoma [Recovered/Resolved]
  - Tension [Not Recovered/Not Resolved]
  - Hand fracture [Not Recovered/Not Resolved]
  - Wrist fracture [Not Recovered/Not Resolved]
  - Enuresis [Recovered/Resolved]
  - Eye contusion [Unknown]
  - Sleep disorder [Not Recovered/Not Resolved]
  - Inflammation [Recovered/Resolved]
  - Speech disorder [Not Recovered/Not Resolved]
  - Thunderclap headache [Not Recovered/Not Resolved]

NARRATIVE: CASE EVENT DATE: 2019
